FAERS Safety Report 6497966-5 (Version None)
Quarter: 2009Q4

REPORT INFORMATION
  Report Type: 
  Country: None (occurrence: None)
  Receive Date: 20091215
  Receipt Date: 20091214
  Transmission Date: 20100525
  Serious: Yes (Other)
  Sender: FDA-Public Use
  Company Number: IR-ROXANE LABORATORIES, INC.-2009-RO-01255RO

PATIENT
  Age: 22 Year
  Sex: Male

DRUGS (4)
  1. RISPERIDONE [Suspect]
     Indication: SCHIZOPHRENIA
     Dosage: 4 MG
  2. FLUOXETINE [Suspect]
     Indication: DEPRESSED MOOD
     Dosage: 20 MG
  3. FLUOXETINE [Suspect]
     Indication: ASTHENIA
  4. NORTRIPTYLINE [Concomitant]
     Indication: DEPRESSION

REACTIONS (3)
  - ASTHENIA [None]
  - DEPRESSED MOOD [None]
  - EPISTAXIS [None]
